FAERS Safety Report 19817092 (Version 1)
Quarter: 2021Q3

REPORT INFORMATION
  Report Type: Spontaneous
  Country: US (occurrence: US)
  Receive Date: 20210910
  Receipt Date: 20210910
  Transmission Date: 20211014
  Serious: No
  Sender: FDA-Public Use
  Company Number: US-PFIZER INC-202101034690

PATIENT
  Age: 83 Year
  Sex: Male
  Weight: 106.59 kg

DRUGS (1)
  1. LATANOPROST. [Suspect]
     Active Substance: LATANOPROST
     Indication: GLAUCOMA
     Dosage: 1 DROP, 1X/DAY
     Dates: start: 2021

REACTIONS (1)
  - Eye discharge [Not Recovered/Not Resolved]

NARRATIVE: CASE EVENT DATE: 2021
